FAERS Safety Report 4405888-6 (Version None)
Quarter: 2004Q3

REPORT INFORMATION
  Report Type: 
  Country: None (occurrence: None)
  Receive Date: 20040723
  Receipt Date: 20040122
  Transmission Date: 20050211
  Serious: No
  Sender: FDA-Public Use
  Company Number: US-GLAXOSMITHKLINE-A0496003A

PATIENT
  Sex: Female

DRUGS (8)
  1. AVANDIA [Suspect]
     Dosage: 4MG TWICE PER DAY
     Route: 048
     Dates: start: 20040120
  2. TOPROL-XL [Concomitant]
     Dosage: 100MG PER DAY
  3. ALTACE [Concomitant]
     Dosage: 10MG PER DAY
  4. GLUCOTROL XL [Concomitant]
     Dosage: 10MG TWICE PER DAY
  5. NEURONTIN [Concomitant]
     Dosage: 800MG TWICE PER DAY
  6. LOPID [Concomitant]
     Dosage: 600MG PER DAY
  7. LIPITOR [Concomitant]
     Dosage: 40MG PER DAY
  8. NEXIUM [Concomitant]
     Dosage: 40MG PER DAY

REACTIONS (1)
  - DIARRHOEA [None]
